FAERS Safety Report 13131853 (Version 1)
Quarter: 2017Q1

REPORT INFORMATION
  Report Type: Spontaneous
  Country: US (occurrence: US)
  Receive Date: 20170119
  Receipt Date: 20170119
  Transmission Date: 20170428
  Serious: Yes (Other)
  Sender: FDA-Public Use
  Company Number: US-BAUSCH-BL-2017-001528

PATIENT
  Age: 65 Year
  Sex: Male

DRUGS (6)
  1. LEUCOVORIN. [Concomitant]
     Active Substance: LEUCOVORIN
     Indication: METASTATIC GASTRIC CANCER
     Route: 065
  2. LEUCOVORIN. [Concomitant]
     Active Substance: LEUCOVORIN
     Indication: CHEMOTHERAPY
  3. OXALIPLATIN. [Concomitant]
     Active Substance: OXALIPLATIN
     Indication: CHEMOTHERAPY
  4. 5-FLUOROURACIL [Suspect]
     Active Substance: FLUOROURACIL
     Indication: METASTATIC GASTRIC CANCER
     Route: 040
  5. 5-FLUOROURACIL [Suspect]
     Active Substance: FLUOROURACIL
     Indication: CHEMOTHERAPY
     Route: 040
  6. OXALIPLATIN. [Concomitant]
     Active Substance: OXALIPLATIN
     Indication: METASTATIC GASTRIC CANCER
     Route: 065

REACTIONS (1)
  - Cardiotoxicity [Unknown]
